FAERS Safety Report 18527802 (Version 1)
Quarter: 2020Q4

REPORT INFORMATION
  Report Type: Spontaneous
  Country: FR (occurrence: FR)
  Receive Date: 20201120
  Receipt Date: 20201120
  Transmission Date: 20210114
  Serious: Yes (Death)
  Sender: FDA-Public Use
  Company Number: NVSC2020FR308574

PATIENT
  Age: 69 Year
  Sex: Male
  Weight: 54 kg

DRUGS (11)
  1. METRONIDAZOLE B BRAUN [Suspect]
     Active Substance: METRONIDAZOLE
     Indication: SEPSIS
     Dosage: 500 MG, Q8H
     Route: 042
     Dates: start: 20201026, end: 20201028
  2. LEVOTHYROXINE SODIQUE [Concomitant]
     Active Substance: LEVOTHYROXINE SODIUM
     Indication: PRODUCT USED FOR UNKNOWN INDICATION
     Dosage: UNK
     Route: 065
  3. OCTREOTIDE. [Concomitant]
     Active Substance: OCTREOTIDE
     Indication: PRODUCT USED FOR UNKNOWN INDICATION
     Dosage: UNK
     Route: 065
  4. VANCOMYCINE SANDOZ 500 MG, POUDRE POUR SOLUTION POUR PERFUSION [Suspect]
     Active Substance: VANCOMYCIN HYDROCHLORIDE
     Indication: SEPSIS
     Dosage: 2000 MG, QD
     Route: 042
     Dates: start: 20201022, end: 20201027
  5. SUFENTANIL [Suspect]
     Active Substance: SUFENTANIL
     Indication: HAEMODYNAMIC INSTABILITY
     Dosage: 1 ML, QH
     Route: 042
     Dates: start: 20201024, end: 20201028
  6. NORADRENALIN [Suspect]
     Active Substance: NOREPINEPHRINE\NOREPINEPHRINE BITARTRATE
     Indication: HAEMODYNAMIC INSTABILITY
     Dosage: 0.1 ML, QH
     Route: 042
     Dates: start: 20201025, end: 20201028
  7. FUROSEMIDE. [Concomitant]
     Active Substance: FUROSEMIDE
     Indication: PRODUCT USED FOR UNKNOWN INDICATION
     Dosage: UNK
     Route: 065
  8. ASPEGIC [Concomitant]
     Indication: PRODUCT USED FOR UNKNOWN INDICATION
     Dosage: UNK
     Route: 065
  9. ATORVASTATINE [Concomitant]
     Active Substance: ATORVASTATIN
     Indication: PRODUCT USED FOR UNKNOWN INDICATION
     Dosage: UNK
     Route: 065
  10. LOVENOX [Concomitant]
     Active Substance: ENOXAPARIN SODIUM
     Indication: PRODUCT USED FOR UNKNOWN INDICATION
     Dosage: UNK
     Route: 065
  11. UMULINE [Concomitant]
     Active Substance: INSULIN HUMAN
     Indication: PRODUCT USED FOR UNKNOWN INDICATION
     Dosage: UNK
     Route: 065

REACTIONS (1)
  - Acute kidney injury [Fatal]

NARRATIVE: CASE EVENT DATE: 20201026
